FAERS Safety Report 5075496-5 (Version None)
Quarter: 2006Q3

REPORT INFORMATION
  Report Type: 
  Country: None (occurrence: None)
  Receive Date: 20060809
  Receipt Date: 20060728
  Transmission Date: 20061208
  Serious: Yes (Other)
  Sender: FDA-Public Use
  Company Number: PHEH2006US09717

PATIENT
  Sex: Female

DRUGS (4)
  1. PAMIDRONATE DISODIUM [Suspect]
     Indication: BREAST CANCER
  2. ZOMETA [Suspect]
     Indication: BREAST CANCER
     Dosage: 4 MG, QMO
     Route: 042
  3. CHEMOTHERAPEUTICS,OTHER [Concomitant]
  4. HORMONES [Concomitant]

REACTIONS (2)
  - JAW OPERATION [None]
  - OSTEONECROSIS [None]
